FAERS Safety Report 15181023 (Version 1)
Quarter: 2018Q3

REPORT INFORMATION
  Report Type: Spontaneous
  Country: PT (occurrence: PT)
  Receive Date: 20180723
  Receipt Date: 20180723
  Transmission Date: 20181010
  Serious: Yes (Hospitalization, Other)
  Sender: FDA-Public Use
  Company Number: PT-BAYER-2018-135418

PATIENT
  Age: 51 Year
  Sex: Female

DRUGS (5)
  1. CIPRO [Suspect]
     Active Substance: CIPROFLOXACIN HYDROCHLORIDE
     Indication: BLISTER
     Dosage: 1000 MG, QD
     Route: 048
     Dates: start: 20140119, end: 20140126
  2. OLFEN [Concomitant]
     Active Substance: DICLOFENAC SODIUM
     Indication: BLISTER
     Dosage: 100 MG, QD
     Route: 048
     Dates: start: 20140119
  3. DESLORATADINE. [Concomitant]
     Active Substance: DESLORATADINE
     Indication: BLISTER
     Dosage: 1 DF, QD
     Route: 048
     Dates: start: 201401
  4. FUCIDINE [Concomitant]
     Active Substance: FUSIDIC ACID
     Indication: BLISTER
     Dosage: 1 DF, UNK
     Route: 061
     Dates: start: 20140119
  5. BENZYL BENZOATE [Concomitant]
     Active Substance: BENZYL BENZOATE
     Indication: BLISTER
     Dosage: 1 DF, UNK
     Route: 061
     Dates: start: 201401, end: 20140126

REACTIONS (2)
  - Dermatitis bullous [Recovered/Resolved]
  - Toxic skin eruption [Recovered/Resolved]

NARRATIVE: CASE EVENT DATE: 20140125
